FAERS Safety Report 7035014-9 (Version None)
Quarter: 2010Q4

REPORT INFORMATION
  Report Type: 
  Country: None (occurrence: None)
  Receive Date: 20101008
  Receipt Date: 20100929
  Transmission Date: 20110411
  Serious: Yes (Other)
  Sender: FDA-Public Use
  Company Number: US-SANOFI-AVENTIS-2010SA058440

PATIENT
  Age: 81 Year
  Sex: Female

DRUGS (13)
  1. MULTAQ [Suspect]
     Indication: ATRIAL FIBRILLATION
     Route: 048
     Dates: start: 20100818, end: 20100924
  2. LIPITOR [Concomitant]
  3. AMLODIPINE BESYLATE [Concomitant]
  4. ANTIHYPERTENSIVES [Concomitant]
  5. ATENOLOL [Concomitant]
  6. WARFARIN SODIUM [Concomitant]
  7. LASIX [Concomitant]
  8. JANUVIA [Concomitant]
  9. LISINOPRIL [Concomitant]
  10. TERAZOSIN HCL [Concomitant]
  11. POTASSIUM CHLORIDE [Concomitant]
  12. CALCIUM [Concomitant]
  13. MULTI-VITAMINS [Concomitant]

REACTIONS (5)
  - CARDIAC FAILURE CONGESTIVE [None]
  - DYSPNOEA [None]
  - LEFT VENTRICULAR END-DIASTOLIC PRESSURE DECREASED [None]
  - OEDEMA PERIPHERAL [None]
  - RASH [None]
